FAERS Safety Report 8188863-8 (Version None)
Quarter: 2012Q1

REPORT INFORMATION
  Report Type: 
  Country: None (occurrence: None)
  Receive Date: 20120306
  Receipt Date: 20120228
  Transmission Date: 20120608
  Serious: Yes (Hospitalization)
  Sender: FDA-Public Use
  Company Number: BE-B.I. PHARMACEUTICALS,INC./RIDGEFIELD-2012-BL-00155BL

PATIENT
  Age: 72 Year
  Sex: Male

DRUGS (4)
  1. AMLODIPINE BESYLATE [Concomitant]
  2. CORDARONE [Concomitant]
  3. PRADAXA [Suspect]
     Indication: ATRIAL FIBRILLATION
     Dosage: 300 MG
  4. ZOCOR [Concomitant]

REACTIONS (5)
  - MALAISE [None]
  - RENAL FAILURE ACUTE [None]
  - HAEMOLYTIC ANAEMIA [None]
  - SPLINTER HAEMORRHAGES [None]
  - PYREXIA [None]
